FAERS Safety Report 9737036 (Version 4)
Quarter: 2015Q3

REPORT INFORMATION
  Report Type: Spontaneous
  Country: US (occurrence: US)
  Receive Date: 20131206
  Receipt Date: 20150804
  Transmission Date: 20151125
  Serious: No
  Sender: FDA-Public Use
  Company Number: US-GILEAD-2009-0024215

PATIENT
  Age: 72 Year
  Sex: Female
  Weight: 57.15 kg

DRUGS (16)
  1. TUMS [Concomitant]
     Active Substance: CALCIUM CARBONATE
  2. LETAIRIS [Suspect]
     Active Substance: AMBRISENTAN
     Indication: PULMONARY ARTERIAL HYPERTENSION
     Route: 048
     Dates: start: 20090811
  3. ASPIRIN. [Concomitant]
     Active Substance: ASPIRIN
  4. ERGOCALCIFEROL/NICOTINAMIDE/RETINOL/ASCORBIC ACID/FOLIC ACID/PANTHENOL/RIBOFLAVIN/THIAMINE HYDROCHLO [Concomitant]
  5. CELEXA [Concomitant]
     Active Substance: CITALOPRAM HYDROBROMIDE
  6. LORTAB [Concomitant]
     Active Substance: ACETAMINOPHEN\HYDROCODONE BITARTRATE
  7. CARDIZEM [Concomitant]
     Active Substance: DILTIAZEM HYDROCHLORIDE
  8. MOBIC [Concomitant]
     Active Substance: MELOXICAM
  9. PLETAL [Concomitant]
     Active Substance: CILOSTAZOL
  10. BONIVA [Concomitant]
     Active Substance: IBANDRONATE SODIUM
  11. EVOXAC [Concomitant]
     Active Substance: CEVIMELINE HYDROCHLORIDE
  12. LYRICA [Concomitant]
     Active Substance: PREGABALIN
  13. PRILOSEC [Concomitant]
     Active Substance: OMEPRAZOLE MAGNESIUM
  14. REVATIO [Concomitant]
     Active Substance: SILDENAFIL CITRATE
  15. LASIX [Concomitant]
     Active Substance: FUROSEMIDE
  16. PREDNISONE. [Concomitant]
     Active Substance: PREDNISONE

REACTIONS (1)
  - Deafness [Unknown]
